FAERS Safety Report 11880389 (Version 1)
Quarter: 2015Q4

REPORT INFORMATION
  Report Type: Spontaneous
  Country: NP (occurrence: US)
  Receive Date: 20151230
  Receipt Date: 20151230
  Transmission Date: 20160305
  Serious: No
  Sender: FDA-Public Use
  Company Number: NP-ACORDA-ACO_118972_2015

PATIENT
  Age: 26 Year
  Sex: Female

DRUGS (3)
  1. FAMOTIDINE. [Suspect]
     Active Substance: FAMOTIDINE
     Indication: DYSPEPSIA
     Dosage: 40 MG, QD X 4 WEEKS
     Route: 065
  2. ACETAMINOPHEN. [Concomitant]
     Active Substance: ACETAMINOPHEN
     Indication: TORTICOLLIS
     Dosage: 500 MG, QID
     Route: 065
  3. TIZANIDINE. [Suspect]
     Active Substance: TIZANIDINE
     Indication: TORTICOLLIS
     Dosage: 2 MG, TID
     Route: 065

REACTIONS (1)
  - Cystitis [Recovering/Resolving]
